FAERS Safety Report 9370977 (Version 3)
Quarter: 2013Q3

REPORT INFORMATION
  Report Type: Spontaneous
  Country: US (occurrence: US)
  Receive Date: 20130627
  Receipt Date: 20130809
  Transmission Date: 20140515
  Serious: Yes (Hospitalization)
  Sender: FDA-Public Use
  Company Number: US-AMGEN-USASP2013044395

PATIENT
  Age: 66 Year
  Sex: Female

DRUGS (3)
  1. ENBREL [Suspect]
     Indication: RHEUMATOID ARTHRITIS
     Dosage: 50 MG, QWK
     Route: 065
     Dates: start: 20061115
  2. VERAPAMIL [Concomitant]
     Indication: HYPERTENSION
     Dosage: UNK
  3. COUMADIN                           /00014802/ [Concomitant]
     Indication: THROMBOSIS
     Dosage: UNK

REACTIONS (23)
  - Knee arthroplasty [Recovered/Resolved]
  - Ligament rupture [Recovered/Resolved]
  - Pain in extremity [Recovered/Resolved]
  - Contusion [Recovered/Resolved]
  - Arthralgia [Not Recovered/Not Resolved]
  - Gait disturbance [Not Recovered/Not Resolved]
  - Fall [Recovered/Resolved]
  - Dizziness [Recovered/Resolved]
  - Asthenia [Recovered/Resolved]
  - Joint injury [Recovered/Resolved]
  - Injection site bruising [Not Recovered/Not Resolved]
  - Nightmare [Not Recovered/Not Resolved]
  - Blood test abnormal [Not Recovered/Not Resolved]
  - Bunion [Not Recovered/Not Resolved]
  - Swelling [Not Recovered/Not Resolved]
  - Skin discolouration [Not Recovered/Not Resolved]
  - Dyspnoea [Not Recovered/Not Resolved]
  - Ocular hyperaemia [Not Recovered/Not Resolved]
  - Dysphonia [Not Recovered/Not Resolved]
  - Dry skin [Not Recovered/Not Resolved]
  - Injection site pain [Recovered/Resolved]
  - Injection site haemorrhage [Recovered/Resolved]
  - Injection site reaction [Recovered/Resolved]
